FAERS Safety Report 7096587-3 (Version None)
Quarter: 2010Q4

REPORT INFORMATION
  Report Type: 
  Country: None (occurrence: None)
  Receive Date: 20101111
  Receipt Date: 20101104
  Transmission Date: 20110411
  Serious: Yes (Hospitalization)
  Sender: FDA-Public Use
  Company Number: B0683892A

PATIENT
  Sex: Female

DRUGS (1)
  1. AUGMENTIN '125' [Suspect]
     Indication: RESPIRATORY TRACT INFECTION
     Dosage: 2G PER DAY
     Route: 048
     Dates: start: 20100919, end: 20100919

REACTIONS (1)
  - DYSPNOEA [None]
